FAERS Safety Report 5272212-9 (Version None)
Quarter: 2007Q1

REPORT INFORMATION
  Report Type: 
  Country: None (occurrence: None)
  Receive Date: 20070322
  Receipt Date: 20061205
  Transmission Date: 20070707
  Serious: No
  Sender: FDA-Public Use
  Company Number: US-GLAXOSMITHKLINE-A0630418A

PATIENT
  Age: 57 Year
  Sex: Female

DRUGS (1)
  1. AVANDARYL [Suspect]
     Route: 048
     Dates: start: 20060401

REACTIONS (1)
  - MUSCLE SPASMS [None]
